FAERS Safety Report 5188049-5 (Version None)
Quarter: 2006Q4

REPORT INFORMATION
  Report Type: 
  Country: None (occurrence: None)
  Receive Date: 20061221
  Receipt Date: 20061113
  Transmission Date: 20070319
  Serious: Yes (Other)
  Sender: FDA-Public Use
  Company Number: PHEH2006US14198

PATIENT
  Age: 40 Year
  Sex: Female

DRUGS (1)
  1. VIVELLE-DOT [Suspect]
     Dosage: UNK, BIW
     Route: 062
     Dates: start: 20060901

REACTIONS (2)
  - PARAESTHESIA [None]
  - VISION BLURRED [None]
